FAERS Safety Report 4613710-8 (Version None)
Quarter: 2005Q1

REPORT INFORMATION
  Report Type: 
  Country: None (occurrence: None)
  Receive Date: 20050315
  Receipt Date: 20050225
  Transmission Date: 20050727
  Serious: Yes (Hospitalization)
  Sender: FDA-Public Use
  Company Number: 10449

PATIENT
  Sex: Female

DRUGS (2)
  1. METHOTREXATE [Suspect]
     Dosage: 20 MG WEEKLY SC
     Route: 058
     Dates: start: 19940901, end: 20010501
  2. ETANERCEPT [Concomitant]

REACTIONS (2)
  - ADVERSE EVENT [None]
  - ARTHRITIS [None]
